FAERS Safety Report 20039812 (Version 5)
Quarter: 2021Q4

REPORT INFORMATION
  Report Type: Spontaneous
  Country: US (occurrence: US)
  Receive Date: 20211106
  Receipt Date: 20211124
  Transmission Date: 20220303
  Serious: Yes (Death, Life-Threatening, Hospitalization, Other)
  Sender: FDA-Public Use
  Company Number: US-009507513-2111USA000797

PATIENT
  Sex: Female
  Weight: 54.422 kg

DRUGS (13)
  1. KEYTRUDA [Suspect]
     Active Substance: PEMBROLIZUMAB
     Indication: Cervix carcinoma
     Dosage: 200 MG, EVERY 3 WEEKS
     Route: 042
     Dates: start: 20210916, end: 20210916
  2. KEYTRUDA [Suspect]
     Active Substance: PEMBROLIZUMAB
     Indication: Refractory cancer
  3. TYLENOL [Concomitant]
     Active Substance: ACETAMINOPHEN
     Dosage: 975 MILLIGRAM, Q6H
     Route: 048
  4. VITAMIN C [Concomitant]
     Active Substance: ASCORBIC ACID
     Dosage: 500 MILLIGRAM, QD
     Route: 048
  5. OSCAL 250+D [Concomitant]
     Dosage: 1 TABLET BID
     Route: 048
  6. ARICEPT [Concomitant]
     Active Substance: DONEPEZIL HYDROCHLORIDE
     Dosage: 10 MILLIGRAM, HS
     Route: 048
  7. LOVENOX [Concomitant]
     Active Substance: ENOXAPARIN SODIUM
     Dosage: 40 MILLIGRAM, QD
     Route: 058
  8. SYNTHROID [Concomitant]
     Active Substance: LEVOTHYROXINE SODIUM
     Dosage: 75 MICROGRAM, QD
     Route: 048
  9. COZAAR [Concomitant]
     Active Substance: LOSARTAN POTASSIUM
     Dosage: 25 MILLIGRAM, QD
     Route: 048
  10. MILK OF MAGNESIA [Concomitant]
     Active Substance: MAGNESIUM HYDROXIDE
     Dosage: 30 MILLILITER, BID
     Route: 048
  11. MELATONIN [Concomitant]
     Active Substance: MELATONIN
     Dosage: 5 MILLIGRAM, HS
     Route: 048
  12. ZOFRAN [Concomitant]
     Active Substance: ONDANSETRON HYDROCHLORIDE
     Dosage: 4 MILLIGRAM, Q6H
     Route: 042
  13. LEVOTHYROXINE [Concomitant]
     Active Substance: LEVOTHYROXINE
     Indication: Hypothyroidism
     Dosage: 25 MICROGRAM, QD
     Route: 048

REACTIONS (40)
  - Myocarditis [Fatal]
  - Drug-induced liver injury [Fatal]
  - Autoimmune myositis [Fatal]
  - Dizziness [Fatal]
  - Vaginal discharge [Not Recovered/Not Resolved]
  - Vulvovaginal discomfort [Not Recovered/Not Resolved]
  - Systemic immune activation [Not Recovered/Not Resolved]
  - Cerebral ischaemia [Not Recovered/Not Resolved]
  - Malignant neoplasm progression [Unknown]
  - Autoimmune hepatitis [Not Recovered/Not Resolved]
  - Rhabdomyolysis [Unknown]
  - Aortic arteriosclerosis [Unknown]
  - Acute myocardial infarction [Unknown]
  - Myasthenia gravis [Unknown]
  - Tricuspid valve incompetence [Unknown]
  - Mitral valve incompetence [Unknown]
  - Aortic valve incompetence [Unknown]
  - Mitral valve calcification [Unknown]
  - Aortic valve sclerosis [Unknown]
  - Constipation [Recovered/Resolved]
  - Poor quality sleep [Unknown]
  - Haemoglobin decreased [Unknown]
  - Ill-defined disorder [Unknown]
  - Pulmonary mass [Unknown]
  - Arteriosclerosis [Not Recovered/Not Resolved]
  - Vision blurred [Not Recovered/Not Resolved]
  - Blood glucose increased [Unknown]
  - Blood calcium decreased [Unknown]
  - Diastolic dysfunction [Unknown]
  - Pulmonary granuloma [Unknown]
  - Headache [Not Recovered/Not Resolved]
  - Dehydration [Unknown]
  - Hypophagia [Unknown]
  - Giant cell arteritis [Unknown]
  - Eye pain [Unknown]
  - Blood glucose increased [Unknown]
  - Lung opacity [Unknown]
  - Gastrooesophageal reflux disease [Unknown]
  - Oesophageal disorder [Unknown]
  - Cough [Unknown]

NARRATIVE: CASE EVENT DATE: 20210101
